FAERS Safety Report 22252484 (Version 1)
Quarter: 2023Q2

REPORT INFORMATION
  Report Type: Spontaneous
  Country: CN (occurrence: CN)
  Receive Date: 20230426
  Receipt Date: 20230426
  Transmission Date: 20230722
  Serious: Yes (Hospitalization)
  Sender: FDA-Public Use
  Company Number: CN-AstraZeneca-2023A090437

PATIENT
  Age: 57 Year
  Sex: Male

DRUGS (3)
  1. METOPROLOL SUCCINATE [Suspect]
     Active Substance: METOPROLOL SUCCINATE
     Indication: Heart rate
     Dosage: 1.000000 TABLET QD
     Route: 048
     Dates: start: 20220901, end: 20230410
  2. VALSARTAN AND HYDROCHLOROTHIAZIDE [Suspect]
     Active Substance: HYDROCHLOROTHIAZIDE\VALSARTAN
     Indication: Blood pressure measurement
     Dosage: 1.000000 TABLET; QD
     Route: 048
     Dates: start: 20220901, end: 20230410
  3. LEVAMLODIPINE BESYLATE [Suspect]
     Active Substance: LEVAMLODIPINE BESYLATE
     Indication: Blood pressure measurement
     Dosage: 1.000000 TABLET; QD
     Route: 048
     Dates: start: 20220901, end: 20230410

REACTIONS (2)
  - Eczema [Recovering/Resolving]
  - Myelosuppression [Recovering/Resolving]

NARRATIVE: CASE EVENT DATE: 20230411
